FAERS Safety Report 7353222-4 (Version None)
Quarter: 2011Q1

REPORT INFORMATION
  Report Type: 
  Country: None (occurrence: None)
  Receive Date: 20110315
  Receipt Date: 20110307
  Transmission Date: 20110831
  Serious: Yes (Disabling, Other)
  Sender: FDA-Public Use
  Company Number: FR-PFIZER INC-2011055212

PATIENT
  Age: 47 Year
  Sex: Male

DRUGS (3)
  1. VIDEX [Suspect]
     Indication: HIV INFECTION
     Dosage: UNK
     Route: 048
     Dates: start: 19980101, end: 20040401
  2. ZERIT [Suspect]
     Indication: HIV INFECTION
     Dosage: UNK
     Route: 048
     Dates: start: 19980101, end: 20040401
  3. VIRACEPT [Suspect]
     Indication: HIV INFECTION
     Dosage: UNK
     Route: 048
     Dates: start: 19980101

REACTIONS (3)
  - CYTOLYTIC HEPATITIS [None]
  - VENOOCCLUSIVE LIVER DISEASE [None]
  - CHOLESTASIS [None]
